FAERS Safety Report 12166856 (Version 1)
Quarter: 2016Q1

REPORT INFORMATION
  Report Type: Spontaneous
  Country: JP (occurrence: JP)
  Receive Date: 20160310
  Receipt Date: 20160310
  Transmission Date: 20160526
  Serious: Yes (Other)
  Sender: FDA-Public Use
  Company Number: JP-SHIRE-JP201602798

PATIENT
  Age: 64 Year
  Sex: Male

DRUGS (2)
  1. 405 (LANTHANUM CARBONATE) [Suspect]
     Active Substance: LANTHANUM CARBONATE
     Dosage: UNK (2250 G), UNKNOWN (TOTAL DAILY DOSE)
     Route: 065
  2. 405 (LANTHANUM CARBONATE) [Suspect]
     Active Substance: LANTHANUM CARBONATE
     Indication: HYPERPHOSPHATAEMIA
     Dosage: 1500 MG, 3X/DAY:TID
     Route: 065
     Dates: start: 201007

REACTIONS (3)
  - Gastric mucosal lesion [Recovered/Resolved]
  - Renal cell carcinoma [Unknown]
  - Gastritis erosive [Recovered/Resolved]

NARRATIVE: CASE EVENT DATE: 2011
